FAERS Safety Report 18982605 (Version 1)
Quarter: 2021Q1

REPORT INFORMATION
  Report Type: Spontaneous
  Country: CN (occurrence: CN)
  Receive Date: 20210308
  Receipt Date: 20210308
  Transmission Date: 20210420
  Serious: Yes (Hospitalization)
  Sender: FDA-Public Use
  Company Number: CN-PFIZER INC-2021218492

PATIENT
  Age: 13 Year
  Sex: Male
  Weight: 38 kg

DRUGS (6)
  1. CYTOSAR [Suspect]
     Active Substance: CYTARABINE
     Indication: ACUTE LYMPHOCYTIC LEUKAEMIA
     Dosage: 36 MG, 1X/DAY
     Route: 037
     Dates: start: 20210216
  2. ENDOXAN [CYCLOPHOSPHAMIDE] [Concomitant]
     Active Substance: CYCLOPHOSPHAMIDE
     Indication: ANAEMIA
  3. ENDOXAN [CYCLOPHOSPHAMIDE] [Concomitant]
     Active Substance: CYCLOPHOSPHAMIDE
     Indication: ACUTE LYMPHOCYTIC LEUKAEMIA
     Dosage: 1.2 G, 1X/DAY
     Route: 041
     Dates: start: 20210216, end: 20210216
  4. VINCRISTINE SULFATE. [Concomitant]
     Active Substance: VINCRISTINE SULFATE
     Indication: ANAEMIA
  5. CYTOSAR [Suspect]
     Active Substance: CYTARABINE
     Indication: ANAEMIA
  6. VINCRISTINE SULFATE. [Concomitant]
     Active Substance: VINCRISTINE SULFATE
     Indication: ACUTE LYMPHOCYTIC LEUKAEMIA
     Dosage: 1.8 MG, 1X/DAY
     Route: 041
     Dates: start: 20210216, end: 20210216

REACTIONS (9)
  - Decreased appetite [Unknown]
  - Headache [Recovering/Resolving]
  - Gingival pain [Recovering/Resolving]
  - Pain in extremity [Unknown]
  - Asthenia [Unknown]
  - Dizziness [Recovering/Resolving]
  - Glossodynia [Recovering/Resolving]
  - Vomiting [Recovering/Resolving]
  - Neuralgia [Recovering/Resolving]

NARRATIVE: CASE EVENT DATE: 20210219
